FAERS Safety Report 20850069 (Version 1)
Quarter: 2022Q2

REPORT INFORMATION
  Report Type: Spontaneous
  Country: US (occurrence: None)
  Receive Date: 20220518
  Receipt Date: 20220518
  Transmission Date: 20220721
  Serious: Yes (Other)
  Sender: FDA-Public Use
  Company Number: None

PATIENT
  Age: 35 Year
  Sex: Male
  Weight: 85.05 kg

DRUGS (3)
  1. BELBUCA [Suspect]
     Active Substance: BUPRENORPHINE HYDROCHLORIDE
     Indication: Drug dependence
     Dosage: OTHER STRENGTH : MCG 600;?OTHER QUANTITY : 1 PATCH(ES);?FREQUENCY : TWICE A DAY;?OTHER ROUTE : PATCH
     Route: 050
     Dates: start: 20180101
  2. TENZEN [Concomitant]
  3. OXYCODONE [Concomitant]
     Active Substance: OXYCODONE

REACTIONS (3)
  - Tooth loss [None]
  - Dental caries [None]
  - Tooth fracture [None]

NARRATIVE: CASE EVENT DATE: 20220429
